FAERS Safety Report 13309471 (Version 1)
Quarter: 2017Q1

REPORT INFORMATION
  Report Type: Spontaneous
  Country: US (occurrence: US)
  Receive Date: 20170309
  Receipt Date: 20170309
  Transmission Date: 20170428
  Serious: Yes (Hospitalization, Other)
  Sender: FDA-Public Use
  Company Number: US-ASTRAZENECA-2017SE23397

PATIENT
  Age: 49 Year
  Sex: Female

DRUGS (4)
  1. BRILINTA [Suspect]
     Active Substance: TICAGRELOR
     Indication: ACUTE MYOCARDIAL INFARCTION
     Dosage: 180.0MG ONCE/SINGLE ADMINISTRATION
     Route: 048
     Dates: start: 20170221
  2. METOPROLOL. [Suspect]
     Active Substance: METOPROLOL
     Dosage: UNKNOWN
     Route: 048
  3. BRILINTA [Suspect]
     Active Substance: TICAGRELOR
     Indication: ACUTE MYOCARDIAL INFARCTION
     Dosage: 90.0MG ONCE/SINGLE ADMINISTRATION
     Route: 048
     Dates: end: 20170228
  4. ASPIRIN. [Concomitant]
     Active Substance: ASPIRIN
     Dosage: UNKNOWN
     Route: 065

REACTIONS (3)
  - Acute myocardial infarction [Unknown]
  - Diabetes mellitus [Unknown]
  - Dyspnoea [Unknown]

NARRATIVE: CASE EVENT DATE: 20170225
